FAERS Safety Report 18284672 (Version 6)
Quarter: 2021Q3

REPORT INFORMATION
  Report Type: Spontaneous
  Country: US (occurrence: US)
  Receive Date: 20200918
  Receipt Date: 20210721
  Transmission Date: 20211014
  Serious: No
  Sender: FDA-Public Use
  Company Number: US-PFIZER INC-2019285435

PATIENT
  Age: 85 Year
  Sex: Female
  Weight: 62.8 kg

DRUGS (1)
  1. LYRICA [Suspect]
     Active Substance: PREGABALIN
     Indication: POLYNEUROPATHY
     Dosage: 150 MG, 4X/DAY
     Route: 048

REACTIONS (6)
  - Pain in extremity [Unknown]
  - Intentional product use issue [Unknown]
  - Gait disturbance [Unknown]
  - Confusional state [Unknown]
  - Hypoacusis [Unknown]
  - Pain [Unknown]
